FAERS Safety Report 9513702 (Version 1)
Quarter: 2013Q1

REPORT INFORMATION
  Report Type: Spontaneous
  Country: US (occurrence: None)
  Receive Date: 20130305
  Receipt Date: 20130305
  Transmission Date: 20140127
  Serious: Yes (Other)
  Sender: FDA-Public Use
  Company Number: 163-21880-12092012

PATIENT
  Age: 63 Year
  Sex: Male

DRUGS (12)
  1. REVLIMID (LENALIDOMIDE) (25 MILLIGRAM, CAPSULES) [Suspect]
     Indication: PLASMA CELL MYELOMA
     Route: 048
     Dates: start: 20080922, end: 2009
  2. ACYCLOVIR (ACICLOVIR) (UNKNOWN) [Concomitant]
  3. ALLEGRA (FEXOFENADINE HYDROCHLORIDE) (UNKNOWN) [Concomitant]
  4. AMLODIPINE (AMLODIPINE) (UNKNOWN) [Concomitant]
  5. FLONASE (FLUTICASONE PROPIONATE) (UNKNOWN) [Concomitant]
  6. HCTZ (HYDROCHLOROTHIAZIDE) (UNKNOWN) [Concomitant]
  7. MICARDIS (TELMISARTAN) (UNKNOWN) [Concomitant]
  8. MVI (MVI) (UNKNOWN) [Concomitant]
  9. POTASSIUM (POTASSIUM) (UNKNOWN) [Concomitant]
  10. PRILOSEC (OMEPRAZOLE) (UNKNOWN) [Concomitant]
  11. TOPROL XL (METOPROLOL SUCCINATE) (UNKNOWN) [Concomitant]
  12. VICODIN (VICODIN) (UNKNOWN) [Concomitant]

REACTIONS (1)
  - Laboratory test abnormal [None]
